FAERS Safety Report 4273998-2 (Version None)
Quarter: 2004Q1

REPORT INFORMATION
  Report Type: 
  Country: None (occurrence: None)
  Receive Date: 20040115
  Receipt Date: 20040107
  Transmission Date: 20041129
  Serious: Yes (Hospitalization, Other)
  Sender: FDA-Public Use
  Company Number: 137357USA

PATIENT
  Age: 67 Year
  Sex: Female
  Weight: 72.5755 kg

DRUGS (10)
  1. COPAXONE [Suspect]
     Indication: MULTIPLE SCLEROSIS
     Dosage: 20 MILLIGRAM DAILY SUBCUTANEOUS
     Route: 058
     Dates: start: 20030530, end: 20030801
  2. GEMFIBROZIL [Concomitant]
  3. ESTRADIOL [Concomitant]
  4. VITAMIN E [Concomitant]
  5. DITROPAN [Concomitant]
  6. VITAMIN B-12 [Concomitant]
  7. ASPIRIN [Concomitant]
  8. METOPROLOL [Concomitant]
  9. PLAVIX [Concomitant]
  10. NITROQUICK [Concomitant]

REACTIONS (2)
  - CHRONIC LYMPHOCYTIC LEUKAEMIA [None]
  - MYOCARDIAL INFARCTION [None]
